FAERS Safety Report 6640218-0 (Version None)
Quarter: 2010Q1

REPORT INFORMATION
  Report Type: 
  Country: None (occurrence: None)
  Receive Date: 20100318
  Receipt Date: 20100312
  Transmission Date: 20100710
  Serious: Yes (Death)
  Sender: FDA-Public Use
  Company Number: IT-CELGENEUS-083-21880-09081753

PATIENT
  Sex: Female

DRUGS (4)
  1. REVLIMID [Suspect]
     Indication: MULTIPLE MYELOMA
     Route: 048
     Dates: start: 20080812, end: 20090614
  2. SOLDESAM [Concomitant]
     Indication: MULTIPLE MYELOMA
     Route: 048
     Dates: start: 20080812, end: 20090614
  3. CELLCEPT [Concomitant]
     Indication: BONE MARROW TRANSPLANT
     Route: 048
  4. DEXAMETHASONE [Concomitant]
     Indication: MULTIPLE MYELOMA
     Route: 048

REACTIONS (7)
  - ACUTE RESPIRATORY DISTRESS SYNDROME [None]
  - ALVEOLITIS [None]
  - BACTERIAL INFECTION [None]
  - BACTERIAL SEPSIS [None]
  - EJECTION FRACTION DECREASED [None]
  - PULMONARY HAEMORRHAGE [None]
  - RESPIRATORY FAILURE [None]
